FAERS Safety Report 11008951 (Version 1)
Quarter: 2015Q2

REPORT INFORMATION
  Report Type: Spontaneous
  Country: IT (occurrence: IT)
  Receive Date: 20150410
  Receipt Date: 20150410
  Transmission Date: 20150821
  Serious: Yes (Death, Other)
  Sender: FDA-Public Use
  Company Number: IT-CIPLA LTD.-2015IT02755

PATIENT

DRUGS (10)
  1. GEMCITABINE [Suspect]
     Active Substance: GEMCITABINE\GEMCITABINE HYDROCHLORIDE
     Indication: SARCOMA
     Dosage: THREE COURSES
  2. TRABECTEDIN [Suspect]
     Active Substance: TRABECTEDIN
     Indication: SARCOMA
     Dosage: 1 MG/SQM, AT DAY 1
     Route: 042
  3. CARBOPLATIN. [Suspect]
     Active Substance: CARBOPLATIN
     Indication: SARCOMA
     Dosage: THREE COURSES
  4. IFOSFAMIDE. [Suspect]
     Active Substance: IFOSFAMIDE
     Indication: SARCOMA
     Dosage: THREE COURSES
  5. ETOPOSIDE. [Suspect]
     Active Substance: ETOPOSIDE
     Indication: SARCOMA
     Dosage: THREE COURSES
  6. DEXAMETHASONE. [Suspect]
     Active Substance: DEXAMETHASONE
     Dosage: 20 MG/M2 30 MIN BEFORE TRABECTEDIN INFUSION
  7. IRINOTECAN [Suspect]
     Active Substance: IRINOTECAN
     Indication: SARCOMA
     Dosage: 75 MG/ SQM, AT DAY 2
  8. IRINOTECAN [Suspect]
     Active Substance: IRINOTECAN
     Dosage: 75 MG/SQM AT DAY 4
  9. TRABECTEDIN [Suspect]
     Active Substance: TRABECTEDIN
     Dosage: 75 MG/SQM AT DAY 4
  10. DOCETAXEL. [Suspect]
     Active Substance: DOCETAXEL
     Indication: SARCOMA
     Dosage: THREE COURSES

REACTIONS (9)
  - Haematotoxicity [Recovered/Resolved]
  - Diarrhoea [Recovered/Resolved]
  - Hepatotoxicity [Recovered/Resolved]
  - Disease progression [Unknown]
  - Discomfort [Unknown]
  - Back pain [Unknown]
  - Condition aggravated [Unknown]
  - Off label use [Unknown]
  - Cerebrovascular accident [Fatal]
